FAERS Safety Report 12852854 (Version 1)
Quarter: 2016Q4

REPORT INFORMATION
  Report Type: Spontaneous
  Country: US (occurrence: US)
  Receive Date: 20161017
  Receipt Date: 20161017
  Transmission Date: 20170207
  Serious: No
  Sender: FDA-Public Use
  Company Number: US-CELGENEUS-USA-2016100028

PATIENT
  Age: 52 Year
  Sex: Female

DRUGS (3)
  1. REVLIMID [Suspect]
     Active Substance: LENALIDOMIDE
     Route: 048
     Dates: start: 201608
  2. REVLIMID [Suspect]
     Active Substance: LENALIDOMIDE
     Indication: PLASMA CELL MYELOMA
     Route: 048
     Dates: start: 200808
  3. REVLIMID [Suspect]
     Active Substance: LENALIDOMIDE
     Route: 048
     Dates: start: 20160702

REACTIONS (11)
  - Respiratory tract congestion [Unknown]
  - Gastrointestinal disorder [Unknown]
  - Rash [Unknown]
  - Cough [Unknown]
  - Muscular weakness [Unknown]
  - Pruritus [Unknown]
  - Muscle spasms [Unknown]
  - Diarrhoea [Unknown]
  - Skin exfoliation [Unknown]
  - Skin discolouration [Unknown]
  - Anxiety [Unknown]

NARRATIVE: CASE EVENT DATE: 20160714
